FAERS Safety Report 19440070 (Version 7)
Quarter: 2022Q1

REPORT INFORMATION
  Report Type: Other
  Country: TW (occurrence: None)
  Receive Date: 20210620
  Receipt Date: 20220125
  Transmission Date: 20220423
  Serious: Yes (Other)
  Sender: FDA-Public Use
  Company Number: TW-ROCHE-2790568

PATIENT
  Age: 62 Year
  Sex: Male
  Weight: 73 kg

DRUGS (4)
  1. TECENTRIQ [Suspect]
     Active Substance: ATEZOLIZUMAB
     Indication: Non-small cell lung cancer
     Dosage: 1200 ML IN  (250 ML NORMAL SALINE) IN 250 ML IVD FOR 60 MIN ST 270 ML/HR?TECENTRIQ_LC/UC (2+1) X 6 T
     Route: 041
  2. DIPHENHYDRAMINE [Concomitant]
     Active Substance: DIPHENHYDRAMINE
     Dosage: 1 AMPULE IVD FOR 10 MIN ST
     Route: 041
  3. DEXAMETHASONE [Concomitant]
     Active Substance: DEXAMETHASONE
     Route: 041
  4. GEMCITABINE [Concomitant]
     Active Substance: GEMCITABINE
     Indication: Non-small cell lung cancer
     Route: 041

REACTIONS (5)
  - Neutropenia [Recovered/Resolved]
  - Anaemia [Recovered/Resolved]
  - Nausea [Recovered/Resolved]
  - Vomiting [Recovered/Resolved]
  - White blood cell count decreased [Unknown]

NARRATIVE: CASE EVENT DATE: 20210311
